FAERS Safety Report 8054427-X (Version None)
Quarter: 2012Q1

REPORT INFORMATION
  Report Type: 
  Country: None (occurrence: None)
  Receive Date: 20120118
  Receipt Date: 20120116
  Transmission Date: 20120608
  Serious: Yes (Life-Threatening, Hospitalization)
  Sender: FDA-Public Use
  Company Number: BE-ABBOTT-11P-013-0874238-00

PATIENT
  Sex: Male
  Weight: 74 kg

DRUGS (4)
  1. HUMIRA [Suspect]
     Indication: ANKYLOSING SPONDYLITIS
     Dates: start: 20070508, end: 20090520
  2. TRAZODONE HCL [Concomitant]
     Indication: INSOMNIA
     Route: 048
     Dates: start: 20040101
  3. MS DIRECT [Concomitant]
     Indication: PAIN
     Route: 048
     Dates: start: 20070101
  4. XANAX [Concomitant]
     Indication: ANXIETY
     Dosage: 1 A 3X/DAY
     Route: 048
     Dates: start: 20040101

REACTIONS (2)
  - DEPRESSION [None]
  - DRUG INEFFECTIVE [None]
